FAERS Safety Report 15087918 (Version 1)
Quarter: 2018Q2

REPORT INFORMATION
  Report Type: Spontaneous
  Country: FR (occurrence: FR)
  Receive Date: 20180629
  Receipt Date: 20180629
  Transmission Date: 20180711
  Serious: Yes (Death, Life-Threatening)
  Sender: FDA-Public Use
  Company Number: FR-ACCORD-068945

PATIENT
  Age: 63 Year
  Sex: Female
  Weight: 64 kg

DRUGS (3)
  1. OXALIPLATIN ACCORD [Suspect]
     Active Substance: OXALIPLATIN
     Indication: T-CELL LYMPHOMA
     Route: 041
     Dates: start: 20170211, end: 20170227
  2. DEXAMETHASONE. [Concomitant]
     Active Substance: DEXAMETHASONE
  3. CYTARABINE ACCORD [Suspect]
     Active Substance: CYTARABINE
     Indication: T-CELL LYMPHOMA
     Route: 041
     Dates: start: 20170211, end: 20170227

REACTIONS (3)
  - Septic shock [Recovering/Resolving]
  - Febrile bone marrow aplasia [Recovering/Resolving]
  - Death [Fatal]

NARRATIVE: CASE EVENT DATE: 20170228
